FAERS Safety Report 5862376-8 (Version None)
Quarter: 2008Q3

REPORT INFORMATION
  Report Type: 
  Country: None (occurrence: None)
  Receive Date: 20080828
  Receipt Date: 20080819
  Transmission Date: 20090109
  Serious: Yes (Hospitalization)
  Sender: FDA-Public Use
  Company Number: GB-TEVA-176057ISR

PATIENT
  Age: 23 Year
  Sex: Female

DRUGS (8)
  1. DICLOFENAC [Suspect]
     Indication: BACK PAIN
     Route: 048
  2. DICLOFENAC [Suspect]
     Route: 054
  3. ANALGESICS [Suspect]
     Route: 008
  4. BUPIVACAINE [Suspect]
     Indication: BACK PAIN
  5. FENTANYL-25 [Suspect]
     Indication: BACK PAIN
  6. ACETAMINOPHEN W/ CODEINE [Suspect]
     Indication: BACK PAIN
     Route: 048
  7. MEPERIDINE HCL [Suspect]
     Indication: BACK PAIN
     Route: 030
  8. TRAMADOL HCL [Suspect]
     Indication: BACK PAIN
     Route: 048

REACTIONS (6)
  - BACK PAIN [None]
  - DRUG EXPOSURE DURING PREGNANCY [None]
  - FALL [None]
  - NORMAL NEWBORN [None]
  - PREMATURE RUPTURE OF MEMBRANES [None]
  - UTERINE CONTRACTIONS DURING PREGNANCY [None]
